FAERS Safety Report 17386909 (Version 1)
Quarter: 2020Q1

REPORT INFORMATION
  Report Type: Report from Study
  Country: NL (occurrence: NL)
  Receive Date: 20200206
  Receipt Date: 20200206
  Transmission Date: 20200409
  Serious: Yes (Other)
  Sender: FDA-Public Use
  Company Number: PHHY2013NL086511

PATIENT
  Age: 46 Year
  Sex: Female

DRUGS (1)
  1. GILENYA [Suspect]
     Active Substance: FINGOLIMOD HYDROCHLORIDE
     Indication: MULTIPLE SCLEROSIS
     Dosage: UNK, QD
     Route: 048
     Dates: start: 20130110

REACTIONS (3)
  - Lymphopenia [Not Recovered/Not Resolved]
  - Eosinophil count decreased [Unknown]
  - Arrhythmia [Unknown]

NARRATIVE: CASE EVENT DATE: 20130110
